FAERS Safety Report 13524987 (Version 1)
Quarter: 2017Q2

REPORT INFORMATION
  Report Type: Spontaneous
  Country: US (occurrence: US)
  Receive Date: 20170508
  Receipt Date: 20170508
  Transmission Date: 20170830
  Serious: No
  Sender: FDA-Public Use
  Company Number: US-ROCHE-1104059

PATIENT
  Sex: Female

DRUGS (10)
  1. AREDIA [Concomitant]
     Active Substance: PAMIDRONATE DISODIUM
  2. METHOTREXATE. [Concomitant]
     Active Substance: METHOTREXATE
  3. HERCEPTIN [Suspect]
     Active Substance: TRASTUZUMAB
     Indication: PRODUCT USED FOR UNKNOWN INDICATION
     Route: 065
  4. 5-FLUOROURACIL [Concomitant]
     Active Substance: FLUOROURACIL
  5. CARBOPLATIN. [Concomitant]
     Active Substance: CARBOPLATIN
  6. FASLODEX [Concomitant]
     Active Substance: FULVESTRANT
  7. CYCLOPHOSPHAMIDE. [Concomitant]
     Active Substance: CYCLOPHOSPHAMIDE
  8. AVASTIN [Suspect]
     Active Substance: BEVACIZUMAB
     Indication: BREAST CANCER FEMALE
     Route: 065
  9. TAXOL [Concomitant]
     Active Substance: PACLITAXEL
  10. TAMOXIFEN [Concomitant]
     Active Substance: TAMOXIFEN

REACTIONS (2)
  - Malaise [Unknown]
  - Disease progression [Unknown]
